FAERS Safety Report 8558595-2 (Version None)
Quarter: 2012Q3

REPORT INFORMATION
  Report Type: 
  Country: None (occurrence: None)
  Receive Date: 20120801
  Receipt Date: 20120725
  Transmission Date: 20120928
  Serious: Yes (Hospitalization)
  Sender: FDA-Public Use
  Company Number: DE-UCBSA-050693

PATIENT
  Sex: Female

DRUGS (6)
  1. HYDROCHLOROTHIAZIDE [Concomitant]
     Indication: HYPERTENSION
     Dosage: DOSE :25
  2. LEFLUNOMIDE [Concomitant]
     Dates: start: 20010501, end: 20070501
  3. BISOPROLOL FUMARATE [Concomitant]
     Indication: HYPERTENSION
     Dosage: 2 X 2.5 MG
  4. CIMZIA [Suspect]
     Indication: RHEUMATOID ARTHRITIS
     Route: 058
     Dates: start: 20100601
  5. METHOTREXATE [Suspect]
     Indication: RHEUMATOID ARTHRITIS
     Dosage: 15,0 (UNSPECIFIED)
     Route: 048
     Dates: start: 20000101
  6. METHOTREXATE [Suspect]
     Dates: start: 20030601

REACTIONS (2)
  - ISCHAEMIC STROKE [None]
  - ROTATOR CUFF SYNDROME [None]
